FAERS Safety Report 21781498 (Version 1)
Quarter: 2022Q4

REPORT INFORMATION
  Report Type: Spontaneous
  Country: JP (occurrence: JP)
  Receive Date: 20221227
  Receipt Date: 20221227
  Transmission Date: 20230113
  Serious: Yes (Hospitalization, Other)
  Sender: FDA-Public Use
  Company Number: JP-ASTELLAS-2022JP019090

PATIENT
  Age: 9 Year
  Sex: Male

DRUGS (7)
  1. TACROLIMUS [Suspect]
     Active Substance: TACROLIMUS
     Indication: Prophylaxis against graft versus host disease
     Dosage: UNK UNK, UNKNOWN FREQ.
     Route: 065
  2. XOSPATA [Suspect]
     Active Substance: GILTERITINIB
     Indication: Acute myeloid leukaemia
     Route: 065
  3. XOSPATA [Suspect]
     Active Substance: GILTERITINIB
     Indication: Myelodysplastic syndrome
     Route: 065
  4. XOSPATA [Suspect]
     Active Substance: GILTERITINIB
     Route: 065
  5. XOSPATA [Suspect]
     Active Substance: GILTERITINIB
     Dosage: UNK UNK, UNKNOWN FREQ.
     Route: 065
  6. XOSPATA [Suspect]
     Active Substance: GILTERITINIB
     Dosage: 40 MG/DAY (1.2 MG/KG/DAY), UNKNOWN FREQ.
     Route: 065
  7. XOSPATA [Suspect]
     Active Substance: GILTERITINIB
     Dosage: 40 MG/DAY (1.2 MG/KG/DAY), UNKNOWN FREQ.
     Route: 065

REACTIONS (7)
  - Chronic graft versus host disease in skin [Unknown]
  - Hypertension [Unknown]
  - Device related sepsis [Unknown]
  - Hepatic function abnormal [Recovering/Resolving]
  - Viral infection [Unknown]
  - Thrombocytopenia [Unknown]
  - Off label use [Unknown]
